FAERS Safety Report 16341289 (Version 1)
Quarter: 2019Q2

REPORT INFORMATION
  Report Type: Spontaneous
  Country: US (occurrence: US)
  Receive Date: 20190522
  Receipt Date: 20190522
  Transmission Date: 20190711
  Serious: Yes (Other)
  Sender: FDA-Public Use
  Company Number: US-TEVA-2019-US-1053628

PATIENT
  Age: 83 Year
  Sex: Male
  Weight: 63.56 kg

DRUGS (5)
  1. VITAMINS [Concomitant]
     Active Substance: VITAMINS
     Indication: SUPPLEMENTATION THERAPY
  2. DULCOLAX NOS [Concomitant]
     Active Substance: BISACODYL OR DOCUSATE SODIUM
     Indication: FAECES SOFT
  3. FINASTERIDE 5 MG TABLET [Concomitant]
     Active Substance: FINASTERIDE
  4. FLUOCINONIDE 0.05% CREAM 60 GM TEVA [Suspect]
     Active Substance: FLUOCINONIDE
     Indication: RASH PRURITIC
     Dosage: FLUOCINONIDE 0.05% CREAM 60 GM, 1 TUBE
     Route: 062
     Dates: start: 20190509, end: 20190510
  5. HYDROCODONE BITARTRATE AND ACETAMINOPHEN [Concomitant]
     Active Substance: ACETAMINOPHEN\HYDROCODONE BITARTRATE
     Dosage: HYDROCODONE/ACETAMINOPHEN 5-325 TB

REACTIONS (4)
  - Application site vesicles [Not Recovered/Not Resolved]
  - Initial insomnia [Not Recovered/Not Resolved]
  - Application site pain [Not Recovered/Not Resolved]
  - Application site pruritus [Not Recovered/Not Resolved]

NARRATIVE: CASE EVENT DATE: 20190509
